FAERS Safety Report 19168290 (Version 1)
Quarter: 2021Q2

REPORT INFORMATION
  Report Type: Spontaneous
  Country: AU (occurrence: AU)
  Receive Date: 20210422
  Receipt Date: 20210422
  Transmission Date: 20210717
  Serious: No
  Sender: FDA-Public Use
  Company Number: AU-B.I. PHARMACEUTICALS,INC./RIDGEFIELD-2021-BI-096316

PATIENT
  Age: 9 Decade
  Sex: Male

DRUGS (2)
  1. JARDIANCE [Suspect]
     Active Substance: EMPAGLIFLOZIN
     Indication: PRODUCT USED FOR UNKNOWN INDICATION
     Route: 065
  2. JARDIANCE [Suspect]
     Active Substance: EMPAGLIFLOZIN
     Route: 065

REACTIONS (7)
  - Dehydration [Recovering/Resolving]
  - C-reactive protein increased [Recovered/Resolved]
  - Lower respiratory tract infection [Recovered/Resolved]
  - Acidosis [Recovered/Resolved]
  - Polyuria [Recovering/Resolving]
  - Blood creatinine abnormal [Unknown]
  - Lethargy [Unknown]
